FAERS Safety Report 9017554 (Version 1)
Quarter: 2013Q1

REPORT INFORMATION
  Report Type: Spontaneous
  Country: US (occurrence: US)
  Receive Date: 20130117
  Receipt Date: 20130117
  Transmission Date: 20140127
  Serious: No
  Sender: FDA-Public Use
  Company Number: US-ASTRAZENECA-2013SE03071

PATIENT
  Age: 52 Year
  Sex: Female

DRUGS (3)
  1. CRESTOR [Suspect]
     Route: 048
  2. NEXIUM [Suspect]
     Route: 048
  3. SYMBICORT PMDI [Suspect]
     Dosage: 160/4.5, MCG , UNKNOWN
     Route: 055

REACTIONS (1)
  - Nasal congestion [Unknown]
